FAERS Safety Report 5230115-X (Version None)
Quarter: 2007Q1

REPORT INFORMATION
  Report Type: 
  Country: None (occurrence: None)
  Receive Date: 20070206
  Receipt Date: 20060714
  Transmission Date: 20070707
  Serious: No
  Sender: FDA-Public Use
  Company Number: US-GLAXOSMITHKLINE-A0612312A

PATIENT
  Age: 41 Year
  Sex: Female

DRUGS (7)
  1. PAXIL CR [Suspect]
     Indication: SERUM SEROTONIN DECREASED
     Dosage: 25MG PER DAY
     Route: 048
  2. SYNTHROID [Concomitant]
  3. TOPROL-XL [Concomitant]
  4. VYTORIN [Concomitant]
  5. CHROMAGEN [Concomitant]
  6. MULTI-VITAMIN [Concomitant]
  7. ASPIRIN [Concomitant]

REACTIONS (2)
  - SERUM SEROTONIN DECREASED [None]
  - TENSION [None]
